FAERS Safety Report 8492049-7 (Version None)
Quarter: 2012Q3

REPORT INFORMATION
  Report Type: 
  Country: None (occurrence: None)
  Receive Date: 20120706
  Receipt Date: 20120702
  Transmission Date: 20120928
  Serious: Yes (Other)
  Sender: FDA-Public Use
  Company Number: US-PFIZER INC-2012119553

PATIENT
  Sex: Female
  Weight: 66.7 kg

DRUGS (3)
  1. GENOTROPIN [Suspect]
     Dosage: 0.2 MG, 1X/DAY
     Route: 058
  2. GENOTROPIN [Suspect]
     Dosage: 0.4 MG, 1X/DAY
     Route: 058
     Dates: start: 20120314, end: 20120414
  3. GENOTROPIN [Suspect]
     Indication: GROWTH HORMONE DEFICIENCY
     Dosage: 0.4 MG, 1X/DAY
     Route: 058
     Dates: start: 20120314

REACTIONS (4)
  - ARTHRALGIA [None]
  - PARAESTHESIA [None]
  - WEIGHT INCREASED [None]
  - OEDEMA PERIPHERAL [None]
